FAERS Safety Report 12543060 (Version 2)
Quarter: 2016Q3

REPORT INFORMATION
  Report Type: Spontaneous
  Country: JP (occurrence: JP)
  Receive Date: 20160710
  Receipt Date: 20160722
  Transmission Date: 20161109
  Serious: Yes (Hospitalization, Other)
  Sender: FDA-Public Use
  Company Number: JP-009507513-1607JPN003538

PATIENT
  Age: 75 Year
  Sex: Female

DRUGS (5)
  1. VFEND [Concomitant]
     Active Substance: VORICONAZOLE
     Indication: FUNGAL INFECTION
     Dosage: DAILY DOSAGE UNKNOWN
     Route: 065
  2. CANCIDAS [Suspect]
     Active Substance: CASPOFUNGIN ACETATE
     Indication: FUNGAL INFECTION
     Dosage: DAILY DOSAGE UNKNOWN
     Route: 041
     Dates: start: 20160705
  3. RISPERIDONE. [Concomitant]
     Active Substance: RISPERIDONE
     Dosage: DAILY DOSE UNKNOWN
     Route: 065
  4. BISOLVON [Concomitant]
     Active Substance: BROMHEXINE HYDROCHLORIDE
     Indication: PRODUCTIVE COUGH
     Dosage: DAILY DOSAGE UNKNOWN
     Route: 065
  5. ITRIZOLE [Concomitant]
     Active Substance: ITRACONAZOLE
     Indication: FUNGAL INFECTION
     Dosage: DAILY DOSAGE UNKNOWN
     Route: 065

REACTIONS (8)
  - Loss of consciousness [Unknown]
  - Tremor [Unknown]
  - Polyuria [Unknown]
  - Pollakiuria [Unknown]
  - Hypokalaemia [Unknown]
  - Pseudoaldosteronism [Unknown]
  - Delirium [Not Recovered/Not Resolved]
  - Seizure [Unknown]

NARRATIVE: CASE EVENT DATE: 201607
